FAERS Safety Report 12821954 (Version 1)
Quarter: 2016Q4

REPORT INFORMATION
  Report Type: Spontaneous
  Country: US (occurrence: US)
  Receive Date: 20161007
  Receipt Date: 20161007
  Transmission Date: 20170207
  Serious: No
  Sender: FDA-Public Use
  Company Number: US-ASTRAZENECA-2016SF03410

PATIENT

DRUGS (1)
  1. BYDUREON [Suspect]
     Active Substance: EXENATIDE
     Dosage: UNKNOWN
     Route: 065

REACTIONS (3)
  - Injection site extravasation [Unknown]
  - Incorrect dose administered [Unknown]
  - Injection site haemorrhage [Unknown]
